FAERS Safety Report 18059663 (Version 1)
Quarter: 2020Q3

REPORT INFORMATION
  Report Type: Spontaneous
  Country: US (occurrence: US)
  Receive Date: 20200723
  Receipt Date: 20200723
  Transmission Date: 20201103
  Serious: Yes (Other)
  Sender: FDA-Public Use
  Company Number: US-GLAXOSMITHKLINE-US2020AMR135777

PATIENT
  Age: 43 Year
  Sex: Female

DRUGS (1)
  1. VENTOLIN HFA [Suspect]
     Active Substance: ALBUTEROL SULFATE
     Indication: PRODUCT USED FOR UNKNOWN INDICATION
     Dosage: UNK
     Route: 065

REACTIONS (14)
  - Hypothyroidism [Unknown]
  - Nicotine dependence [Unknown]
  - Insomnia [Unknown]
  - Essential hypertension [Unknown]
  - Polyarthritis [Unknown]
  - Psoriasis [Unknown]
  - Constipation [Unknown]
  - Oedema peripheral [Unknown]
  - Chronic obstructive pulmonary disease [Unknown]
  - Liver disorder [Unknown]
  - Adjustment disorder [Unknown]
  - Hepatic encephalopathy [Unknown]
  - Thrombocytopenia [Unknown]
  - Depressed mood [Unknown]

NARRATIVE: CASE EVENT DATE: 20140212
